FAERS Safety Report 24538266 (Version 1)
Quarter: 2024Q4

REPORT INFORMATION
  Report Type: Report from Study
  Country: CA (occurrence: CA)
  Receive Date: 20241023
  Receipt Date: 20241023
  Transmission Date: 20250115
  Serious: Yes (Other)
  Sender: ACCORD
  Company Number: None

PATIENT
  Sex: Male

DRUGS (5)
  1. MYCOPHENOLATE MOFETIL [Suspect]
     Active Substance: MYCOPHENOLATE MOFETIL
     Indication: Product used for unknown indication
     Dosage: 2 EVERY 1 DAYS?5ML
     Route: 048
  2. ACTEMRA [Suspect]
     Active Substance: TOCILIZUMAB
     Indication: Juvenile idiopathic arthritis
     Route: 058
  3. ACETAZOLAMIDE [Concomitant]
     Active Substance: ACETAZOLAMIDE
  4. ATROPINE [Concomitant]
     Active Substance: ATROPINE
  5. ADALIMUMAB [Concomitant]
     Active Substance: ADALIMUMAB

REACTIONS (5)
  - Abdominal discomfort [Unknown]
  - Eye disorder [Unknown]
  - Eye haemorrhage [Unknown]
  - Product taste abnormal [Unknown]
  - Visual impairment [Unknown]
